FAERS Safety Report 8861359 (Version 1)
Quarter: 2012Q4

REPORT INFORMATION
  Report Type: Spontaneous
  Country: US (occurrence: None)
  Receive Date: 20121022
  Receipt Date: 20121022
  Transmission Date: 20130627
  Serious: Yes (Life-Threatening)
  Sender: FDA-Public Use
  Company Number: 2012MA012447

PATIENT
  Age: 63 Year
  Sex: Female

DRUGS (1)
  1. PACLITAXEL [Suspect]
     Indication: ENDOMETRIOID ADENOCARCINOMA METASTATIC
     Route: 042
     Dates: start: 20121005, end: 20121005

REACTIONS (3)
  - Dyspnoea [None]
  - Back pain [None]
  - Hyperhidrosis [None]
